FAERS Safety Report 8264234-0 (Version None)
Quarter: 2012Q2

REPORT INFORMATION
  Report Type: 
  Country: None (occurrence: None)
  Receive Date: 20120406
  Receipt Date: 20120326
  Transmission Date: 20120825
  Serious: Yes (Other)
  Sender: FDA-Public Use
  Company Number: US-JNJFOC-20120400880

PATIENT
  Sex: Male
  Weight: 76.66 kg

DRUGS (2)
  1. CEPHALOSPORINS [Suspect]
     Indication: FOLLICULITIS
     Route: 065
     Dates: start: 20110101, end: 20110101
  2. REMICADE [Suspect]
     Indication: CROHN'S DISEASE
     Route: 042
     Dates: start: 20071201, end: 20120301

REACTIONS (4)
  - FOLLICULITIS [None]
  - ADENOIDAL HYPERTROPHY [None]
  - TOOTH INFECTION [None]
  - HENOCH-SCHONLEIN PURPURA [None]
